FAERS Safety Report 18360555 (Version 1)
Quarter: 2020Q4

REPORT INFORMATION
  Report Type: Spontaneous
  Country: US (occurrence: US)
  Receive Date: 20201008
  Receipt Date: 20201008
  Transmission Date: 20210114
  Serious: No
  Sender: FDA-Public Use
  Company Number: US-INDIVIOR US-INDV-124905-2020

PATIENT
  Sex: Female

DRUGS (7)
  1. DULOXETINE. [Interacting]
     Active Substance: DULOXETINE
     Indication: DEPRESSION
     Dosage: UNK (CAPSULE)
     Route: 065
  2. SUBOXONE [Interacting]
     Active Substance: BUPRENORPHINE HYDROCHLORIDE\NALOXONE HYDROCHLORIDE
     Indication: DRUG DEPENDENCE
     Dosage: CUTTING THE FILMS, UNK
     Route: 060
  3. XANAX [Concomitant]
     Active Substance: ALPRAZOLAM
     Dosage: TOOK ONE HALF OF THE MEDICATION, UNK (TABLET)
     Route: 065
     Dates: start: 20200512
  4. SUBOXONE [Suspect]
     Active Substance: BUPRENORPHINE HYDROCHLORIDE\NALOXONE HYDROCHLORIDE
     Indication: DRUG DEPENDENCE
     Dosage: 8 MILLIGRAM, BID
     Route: 060
  5. SUBOXONE [Interacting]
     Active Substance: BUPRENORPHINE HYDROCHLORIDE\NALOXONE HYDROCHLORIDE
     Dosage: CUTTING THE FILMS, UNK
     Route: 060
  6. XANAX [Concomitant]
     Active Substance: ALPRAZOLAM
     Indication: ANXIETY
     Dosage: 0.125 MG, PRN (TABLET)
     Route: 065
  7. SUBOXONE [Interacting]
     Active Substance: BUPRENORPHINE HYDROCHLORIDE\NALOXONE HYDROCHLORIDE
     Dosage: 12 MILLIGRAM, QD
     Route: 060

REACTIONS (15)
  - Inappropriate schedule of product administration [Recovered/Resolved]
  - Chapped lips [Unknown]
  - Nasal discharge discolouration [Unknown]
  - Confusional state [Unknown]
  - Somnolence [Not Recovered/Not Resolved]
  - Drug interaction [Not Recovered/Not Resolved]
  - Hypertension [Unknown]
  - Wrong technique in product usage process [Recovered/Resolved]
  - Glossitis [Unknown]
  - Fatigue [Unknown]
  - Oral discomfort [Unknown]
  - Respiratory tract infection [Not Recovered/Not Resolved]
  - Tongue erythema [Unknown]
  - Dyspnoea [Not Recovered/Not Resolved]
  - Abdominal discomfort [Unknown]

NARRATIVE: CASE EVENT DATE: 202005
